FAERS Safety Report 10307135 (Version 3)
Quarter: 2014Q3

REPORT INFORMATION
  Report Type: Spontaneous
  Country: US (occurrence: US)
  Receive Date: 20140716
  Receipt Date: 20140818
  Transmission Date: 20150326
  Serious: Yes (Hospitalization, Other)
  Sender: FDA-Public Use
  Company Number: US-AMGEN INC.-USASP2014052875

PATIENT
  Age: 64 Year
  Sex: Male
  Weight: 86.26 kg

DRUGS (9)
  1. ENBREL [Suspect]
     Active Substance: ETANERCEPT
     Indication: RHEUMATOID ARTHRITIS
     Dosage: 25 MG, 2 TIMES/WK
     Route: 058
     Dates: start: 200811, end: 201404
  2. AMLODIPINE [Concomitant]
     Active Substance: AMLODIPINE BESYLATE
     Dosage: 10 MG,1 TABLET EVERY DAY
     Route: 048
  3. ARAVA [Concomitant]
     Active Substance: LEFLUNOMIDE
     Dosage: 20 MG, QD (1 TABLET EVERDAY)
     Route: 048
     Dates: start: 20130905
  4. FISH OIL [Concomitant]
     Active Substance: FISH OIL
     Dosage: 1000 MG, QD
     Dates: start: 20100601
  5. LOSARTAN [Concomitant]
     Active Substance: LOSARTAN
     Dosage: 50 MG, 1 TABLET EVERDAY
     Route: 048
     Dates: start: 20100601
  6. PREVACID [Concomitant]
     Active Substance: LANSOPRAZOLE
     Dosage: 30 MG, 1 CAPSULE EVERY DAY BEFORE MEAL
     Route: 048
     Dates: start: 20100601
  7. PREDNISONE. [Concomitant]
     Active Substance: PREDNISONE
     Dosage: 5 MG, 1TABLET DAILY
     Route: 048
     Dates: start: 20131212
  8. CRESTOR [Concomitant]
     Active Substance: ROSUVASTATIN CALCIUM
     Dosage: 20 MG, 1 TABLET EVERY DAY
     Route: 048
     Dates: start: 20100601
  9. VITAMIN D3 [Concomitant]
     Active Substance: CHOLECALCIFEROL
     Dosage: 2000 UNIT,  1 CAPSULE EVERYDAY
     Route: 048

REACTIONS (21)
  - Incision site infection [Not Recovered/Not Resolved]
  - Pain in extremity [Not Recovered/Not Resolved]
  - Urinary casts [Unknown]
  - Red blood cell sedimentation rate increased [Unknown]
  - Monocyte count abnormal [Unknown]
  - Protein urine present [Unknown]
  - Glomerular filtration rate decreased [Unknown]
  - Musculoskeletal pain [Recovered/Resolved]
  - Mean platelet volume abnormal [Unknown]
  - Lymphocyte count abnormal [Unknown]
  - Blood creatinine increased [Unknown]
  - Malignant melanoma [Recovered/Resolved]
  - Occult blood positive [Unknown]
  - Neutrophil count abnormal [Unknown]
  - Urinary tract infection [Unknown]
  - Urine analysis abnormal [Unknown]
  - Atrioventricular block [Unknown]
  - Peripheral swelling [Not Recovered/Not Resolved]
  - Red blood cells urine [Unknown]
  - Eosinophil count abnormal [Unknown]
  - White blood cell count abnormal [Unknown]

NARRATIVE: CASE EVENT DATE: 20090212
